FAERS Safety Report 23055503 (Version 1)
Quarter: 2023Q4

REPORT INFORMATION
  Report Type: Spontaneous
  Country: US (occurrence: None)
  Receive Date: 20231011
  Receipt Date: 20231011
  Transmission Date: 20240110
  Serious: Yes (Hospitalization, Disabling)
  Sender: FDA-Public Use
  Company Number: None

PATIENT
  Age: 72 Year
  Sex: Female
  Weight: 45.45 kg

DRUGS (2)
  1. EVENITY [Suspect]
     Active Substance: ROMOSOZUMAB-AQQG
     Indication: Osteoporosis
  2. EVENITY [Concomitant]
     Active Substance: ROMOSOZUMAB-AQQG
     Dates: start: 20230815, end: 20230922

REACTIONS (2)
  - Cerebrovascular accident [None]
  - Speech disorder [None]

NARRATIVE: CASE EVENT DATE: 20230922
